FAERS Safety Report 6466603-8 (Version None)
Quarter: 2009Q4

REPORT INFORMATION
  Report Type: 
  Country: None (occurrence: None)
  Receive Date: 20091127
  Receipt Date: 20091127
  Transmission Date: 20100525
  Serious: No
  Sender: FDA-Public Use
  Company Number: None

PATIENT
  Age: 86 Year
  Sex: Female
  Weight: 77.1115 kg

DRUGS (2)
  1. ZICAM ADULT NASAL GEL SWAB [Suspect]
     Dosage: SPORADIC FOR YEARS
     Dates: end: 20090601
  2. ACTACAND [Concomitant]

REACTIONS (1)
  - ANOSMIA [None]
